FAERS Safety Report 5888825-7 (Version None)
Quarter: 2008Q3

REPORT INFORMATION
  Report Type: 
  Country: None (occurrence: None)
  Receive Date: 20080919
  Receipt Date: 20080910
  Transmission Date: 20090109
  Serious: Yes (Hospitalization, Other)
  Sender: FDA-Public Use
  Company Number: US-JNJFOC-20080803863

PATIENT
  Sex: Female
  Weight: 66.23 kg

DRUGS (5)
  1. ULTRAM ER [Suspect]
     Indication: PELVIC PAIN
     Route: 048
  2. TOPAMAX [Concomitant]
     Indication: PELVIC PAIN
     Route: 048
  3. LYRICA [Concomitant]
     Indication: PELVIC PAIN
     Route: 048
  4. CYMBALTA [Concomitant]
     Indication: PELVIC PAIN
     Route: 048
  5. AMBIEN [Concomitant]

REACTIONS (1)
  - CATATONIA [None]
